FAERS Safety Report 8007670-X (Version None)
Quarter: 2011Q4

REPORT INFORMATION
  Report Type: 
  Country: None (occurrence: None)
  Receive Date: 20111227
  Receipt Date: 20110902
  Transmission Date: 20120403
  Serious: No
  Sender: FDA-Public Use
  Company Number: US-ABBOTT-11P-163-0852139-00

PATIENT
  Sex: Male
  Weight: 68.1 kg

DRUGS (5)
  1. CALCIUM ACETATE [Concomitant]
     Indication: SUPPLEMENTATION THERAPY
  2. ADVAIR DISKUS 100/50 [Concomitant]
     Indication: CHRONIC OBSTRUCTIVE PULMONARY DISEASE
  3. LUPRON DEPOT [Suspect]
     Indication: PROSTATE CANCER
     Dates: start: 20110601
  4. SEREVENT [Concomitant]
     Indication: CHRONIC OBSTRUCTIVE PULMONARY DISEASE
  5. ALBUTEROL [Concomitant]
     Indication: CHRONIC OBSTRUCTIVE PULMONARY DISEASE

REACTIONS (1)
  - SENSITIVITY OF TEETH [None]
